FAERS Safety Report 10046633 (Version 1)
Quarter: 2014Q1

REPORT INFORMATION
  Report Type: Spontaneous
  Country: US (occurrence: US)
  Receive Date: 20140331
  Receipt Date: 20140331
  Transmission Date: 20141002
  Serious: Yes (Death)
  Sender: FDA-Public Use
  Company Number: US-BRISTOL-MYERS SQUIBB COMPANY-20552964

PATIENT
  Sex: Male

DRUGS (2)
  1. BYETTA [Suspect]
     Dosage: LAST DOSE: APR11
     Dates: start: 200809
  2. JANUMET [Suspect]
     Dosage: LAST DOSE: AUG2008
     Dates: start: 200709

REACTIONS (1)
  - Pancreatic carcinoma [Fatal]
